FAERS Safety Report 26083129 (Version 1)
Quarter: 2025Q4

REPORT INFORMATION
  Report Type: Spontaneous
  Country: CN (occurrence: CN)
  Receive Date: 20251124
  Receipt Date: 20251124
  Transmission Date: 20260117
  Serious: Yes (Life-Threatening, Other)
  Sender: PFIZER
  Company Number: CN-PFIZER INC-PV202500135614

PATIENT
  Age: 50 Year
  Sex: Male

DRUGS (3)
  1. METHYLPREDNISOLONE SODIUM SUCCINATE [Suspect]
     Active Substance: METHYLPREDNISOLONE SODIUM SUCCINATE
     Indication: End stage renal disease
     Dosage: 500 MG
  2. THALIDOMIDE [Suspect]
     Active Substance: THALIDOMIDE
     Indication: End stage renal disease
     Dosage: 100 MG, DAILY
  3. DEXAMETHASONE [Suspect]
     Active Substance: DEXAMETHASONE
     Indication: End stage renal disease
     Dosage: 40 MG, WEEKLY

REACTIONS (1)
  - Drug ineffective [Unknown]
